FAERS Safety Report 25705493 (Version 3)
Quarter: 2025Q3

REPORT INFORMATION
  Report Type: Report from Study
  Country: JP (occurrence: JP)
  Receive Date: 20250820
  Receipt Date: 20250924
  Transmission Date: 20251020
  Serious: Yes (Other)
  Sender: ALEXION PHARMACEUTICALS
  Company Number: JP-ASTRAZENECA-240049096_032320_P_1

PATIENT
  Age: 19 Year
  Sex: Female
  Weight: 84 kg

DRUGS (16)
  1. ANIFROLUMAB [Suspect]
     Active Substance: ANIFROLUMAB
     Indication: Systemic lupus erythematosus
     Dosage: 300 MILLIGRAM, UNK, FREQUENCY: Q4WK
     Dates: start: 20230315
  2. PREDNISOLONE [Suspect]
     Active Substance: PREDNISOLONE
     Indication: Systemic lupus erythematosus
  3. PREDNISOLONE [Suspect]
     Active Substance: PREDNISOLONE
     Dates: start: 20230304, end: 20230314
  4. PREDNISOLONE [Suspect]
     Active Substance: PREDNISOLONE
     Dates: start: 20230315, end: 20230512
  5. PREDNISOLONE [Suspect]
     Active Substance: PREDNISOLONE
     Dates: start: 20230513, end: 20230609
  6. PREDNISOLONE [Suspect]
     Active Substance: PREDNISOLONE
     Dates: start: 20230610, end: 20230707
  7. PREDNISOLONE [Suspect]
     Active Substance: PREDNISOLONE
     Dates: start: 20230708, end: 20230804
  8. PREDNISOLONE [Suspect]
     Active Substance: PREDNISOLONE
     Dates: start: 20230805, end: 20231027
  9. PREDNISOLONE [Suspect]
     Active Substance: PREDNISOLONE
     Dates: start: 20231028, end: 20231222
  10. PREDNISOLONE [Suspect]
     Active Substance: PREDNISOLONE
     Dates: start: 20231223, end: 20240216
  11. PREDNISOLONE [Suspect]
     Active Substance: PREDNISOLONE
     Dates: start: 20240217, end: 20240322
  12. PREDNISOLONE [Suspect]
     Active Substance: PREDNISOLONE
  13. PREDNISOLONE [Suspect]
     Active Substance: PREDNISOLONE
  14. PROGRAF [Suspect]
     Active Substance: TACROLIMUS
     Indication: Systemic lupus erythematosus
  15. IMURAN [Suspect]
     Active Substance: AZATHIOPRINE
     Indication: Systemic lupus erythematosus
  16. LOXOPROFEN [Concomitant]
     Active Substance: LOXOPROFEN

REACTIONS (4)
  - Uterine haemorrhage [Recovering/Resolving]
  - COVID-19 [Recovered/Resolved]
  - Off label use [Unknown]
  - Arthralgia [Unknown]

NARRATIVE: CASE EVENT DATE: 20230615
